FAERS Safety Report 25606607 (Version 1)
Quarter: 2025Q3

REPORT INFORMATION
  Report Type: Spontaneous
  Country: US (occurrence: US)
  Receive Date: 20250725
  Receipt Date: 20250725
  Transmission Date: 20251020
  Serious: Yes (Hospitalization, Other)
  Sender: AMGEN
  Company Number: US-AMGEN-USASP2025141212

PATIENT

DRUGS (2)
  1. PREDNISONE [Suspect]
     Active Substance: PREDNISONE
     Indication: Immunosuppressant drug therapy
     Dosage: UNK, QD, MILLIGRAM
     Route: 065
  2. BARICITINIB [Suspect]
     Active Substance: BARICITINIB
     Indication: Chronic graft versus host disease
     Route: 065

REACTIONS (17)
  - Arthritis infective [Unknown]
  - Chronic graft versus host disease [Unknown]
  - Neutropenia [Unknown]
  - Epstein-Barr virus associated lymphoproliferative disorder [Unknown]
  - Epstein-Barr viraemia [Unknown]
  - Polyomavirus viraemia [Unknown]
  - Pneumonia [Unknown]
  - Cellulitis [Unknown]
  - Myalgia [Unknown]
  - Upper respiratory tract infection [Unknown]
  - Hypophosphataemia [Unknown]
  - Hypertriglyceridaemia [Unknown]
  - Cytomegalovirus infection [Unknown]
  - Epstein-Barr virus infection [Unknown]
  - Blepharal papilloma [Unknown]
  - Lung diffusion test decreased [Unknown]
  - Adverse event [Unknown]
